FAERS Safety Report 5047566-9 (Version None)
Quarter: 2006Q2

REPORT INFORMATION
  Report Type: 
  Country: None (occurrence: None)
  Receive Date: 20060601
  Receipt Date: 20060327
  Transmission Date: 20061013
  Serious: No
  Sender: FDA-Public Use
  Company Number: 2006PV010980

PATIENT
  Age: 67 Year
  Sex: Female
  Weight: 101.1521 kg

DRUGS (5)
  1. BYETTA [Suspect]
     Indication: DIABETES MELLITUS NON-INSULIN-DEPENDENT
     Dosage: 5 MCG; BID; SC
     Route: 058
     Dates: start: 20060323
  2. AMARYL [Concomitant]
  3. GLUCOPHAGE XR [Concomitant]
  4. REGULAR ILETIN II [Concomitant]
  5. NPH ILETIN I (BEEF-PORK) [Concomitant]

REACTIONS (1)
  - BLOOD GLUCOSE INCREASED [None]
